FAERS Safety Report 21050021 (Version 1)
Quarter: 2022Q3

REPORT INFORMATION
  Report Type: Spontaneous
  Country: US (occurrence: US)
  Receive Date: 20220706
  Receipt Date: 20220706
  Transmission Date: 20221027
  Serious: No
  Sender: FDA-Public Use
  Company Number: US-009507513-2206USA003134

PATIENT

DRUGS (3)
  1. VARIVAX [Suspect]
     Active Substance: VARICELLA-ZOSTER VIRUS STRAIN OKA/MERCK LIVE ANTIGEN
     Indication: Prophylaxis
     Dosage: .5 MILLILITER
     Route: 058
     Dates: start: 20220606
  2. M-M-R II [Suspect]
     Active Substance: MEASLES VIRUS STRAIN ENDERS^ ATTENUATED EDMONSTON LIVE ANTIGEN\MUMPS VIRUS STRAIN B LEVEL JERYL LYNN
     Indication: Prophylaxis
     Dosage: .5 MILLILITER
     Route: 058
     Dates: start: 20220606
  3. STERILE DILUENT (WATER) [Suspect]
     Active Substance: WATER
     Dosage: 0.5 MILLILITER, PRODUCT QUANTITY: 2
     Route: 058
     Dates: start: 20220606

REACTIONS (3)
  - Expired product administered [Unknown]
  - Product preparation issue [Unknown]
  - No adverse event [Unknown]

NARRATIVE: CASE EVENT DATE: 20220606
